FAERS Safety Report 16165529 (Version 2)
Quarter: 2019Q3

REPORT INFORMATION
  Report Type: Spontaneous
  Country: US (occurrence: US)
  Receive Date: 20190405
  Receipt Date: 20190801
  Transmission Date: 20191004
  Serious: Yes (Other)
  Sender: FDA-Public Use
  Company Number: US-ASTRAZENECA-2018SF65454

PATIENT
  Age: 72 Year
  Sex: Female

DRUGS (10)
  1. ACZONE [Concomitant]
     Active Substance: DAPSONE
  2. NITROFURANTOIN. [Concomitant]
     Active Substance: NITROFURANTOIN
  3. GABAPENTIN. [Concomitant]
     Active Substance: GABAPENTIN
  4. NEXIUM [Suspect]
     Active Substance: ESOMEPRAZOLE MAGNESIUM
     Indication: LARGE INTESTINAL POLYPECTOMY
     Dosage: 20.0MG UNKNOWN
     Route: 048
     Dates: start: 2010, end: 2016
  5. NAPROXEN. [Concomitant]
     Active Substance: NAPROXEN
  6. MELOXICAM. [Concomitant]
     Active Substance: MELOXICAM
  7. AVELOX [Concomitant]
     Active Substance: MOXIFLOXACIN HYDROCHLORIDE
  8. SINGULAIR [Concomitant]
     Active Substance: MONTELUKAST SODIUM
  9. NEXIUM [Suspect]
     Active Substance: ESOMEPRAZOLE MAGNESIUM
     Indication: LARGE INTESTINAL POLYPECTOMY
     Dosage: UNKNOWN
     Route: 048
     Dates: start: 20130309
  10. DICYCLOMINE [Concomitant]
     Active Substance: DICYCLOMINE HYDROCHLORIDE

REACTIONS (3)
  - Renal failure [Unknown]
  - Chronic kidney disease [Not Recovered/Not Resolved]
  - Rebound acid hypersecretion [Unknown]

NARRATIVE: CASE EVENT DATE: 2016
